FAERS Safety Report 21760670 (Version 2)
Quarter: 2022Q4

REPORT INFORMATION
  Report Type: Spontaneous
  Country: TR (occurrence: TR)
  Receive Date: 20221221
  Receipt Date: 20221228
  Transmission Date: 20230112
  Serious: Yes (Other)
  Sender: FDA-Public Use
  Company Number: TR-002147023-NVSC2022TR278861

PATIENT
  Age: 42 Year
  Sex: Female

DRUGS (1)
  1. SACUBITRIL\VALSARTAN [Suspect]
     Active Substance: SACUBITRIL\VALSARTAN
     Indication: Cardiac failure
     Dosage: 0.5 DOSAGE FORM (97/103 MG) (97.2 MG SACUBITRIL AND 102.8 MG VALSARTAN) HALF TABLET-MORNING, HALF TA
     Route: 065

REACTIONS (7)
  - Hypotension [Unknown]
  - Heart rate decreased [Unknown]
  - Hypoaesthesia [Unknown]
  - Presyncope [Unknown]
  - Suspected counterfeit product [Unknown]
  - Wrong technique in product usage process [Unknown]
  - Therapeutic product effect incomplete [Unknown]
